FAERS Safety Report 19241910 (Version 2)
Quarter: 2022Q1

REPORT INFORMATION
  Report Type: Report from Study
  Country: US (occurrence: None)
  Receive Date: 20210511
  Receipt Date: 20220117
  Transmission Date: 20220423
  Serious: Yes (Other)
  Sender: FDA-Public Use
  Company Number: US-ROCHE-2631619

PATIENT
  Age: 55 Year
  Sex: Female

DRUGS (2)
  1. ATEZOLIZUMAB [Suspect]
     Active Substance: ATEZOLIZUMAB
     Indication: Triple negative breast cancer
     Route: 042
  2. OLAPARIB [Suspect]
     Active Substance: OLAPARIB
     Indication: Triple negative breast cancer
     Route: 048

REACTIONS (1)
  - Anaemia [Unknown]
